FAERS Safety Report 16884534 (Version 1)
Quarter: 2019Q4

REPORT INFORMATION
  Report Type: Other
  Country: CA (occurrence: CA)
  Receive Date: 20191004
  Receipt Date: 20191004
  Transmission Date: 20200122
  Serious: Yes (Other)
  Sender: FDA-Public Use
  Company Number: CA-PFIZER INC-2019419422

PATIENT

DRUGS (8)
  1. BUPIVACAINE HCL [Suspect]
     Active Substance: BUPIVACAINE HYDROCHLORIDE
     Dosage: 4 ML, UNK
     Route: 064
  2. SYNTHROID [Suspect]
     Active Substance: LEVOTHYROXINE SODIUM
     Indication: HYPOTHYROIDISM
     Dosage: UNK
     Route: 064
  3. AMITRIPTYLINE [Suspect]
     Active Substance: AMITRIPTYLINE
     Indication: MIGRAINE
     Dosage: 30 MG, UNK
     Route: 064
  4. BUPIVACAINE HCL [Suspect]
     Active Substance: BUPIVACAINE HYDROCHLORIDE
     Dosage: 5 ML, UNK
     Route: 064
  5. BUPIVACAINE HCL [Suspect]
     Active Substance: BUPIVACAINE HYDROCHLORIDE
     Indication: PAIN
     Dosage: 10 ML, UNK
     Route: 064
  6. DINOPROSTONE. [Suspect]
     Active Substance: DINOPROSTONE
     Dosage: UNK
     Route: 064
  7. FENTANYL CITRATE. [Suspect]
     Active Substance: FENTANYL CITRATE
     Indication: PAIN
     Dosage: 50 MG, UNK
     Route: 064
  8. OXYTOCIN. [Suspect]
     Active Substance: OXYTOCIN
     Dosage: UNK
     Route: 064

REACTIONS (3)
  - Tachycardia foetal [Unknown]
  - Foetal exposure during pregnancy [Unknown]
  - Foetal heart rate deceleration abnormality [Unknown]
